FAERS Safety Report 12691223 (Version 10)
Quarter: 2019Q2

REPORT INFORMATION
  Report Type: Report from Study
  Country: US (occurrence: US)
  Receive Date: 20160826
  Receipt Date: 20190625
  Transmission Date: 20190711
  Serious: Yes (Hospitalization)
  Sender: FDA-Public Use
  Company Number: US-EISAI MEDICAL RESEARCH-EC-2016-019762

PATIENT
  Age: 74 Year
  Sex: Male
  Weight: 82.6 kg

DRUGS (10)
  1. LENVATINIB [Suspect]
     Active Substance: LENVATINIB
     Indication: SQUAMOUS CELL CARCINOMA OF LUNG
     Route: 048
     Dates: start: 20160810, end: 20160824
  2. RAPAFLO [Concomitant]
     Active Substance: SILODOSIN
  3. ASA [Concomitant]
     Active Substance: ASPIRIN
  4. SYNTHROID [Concomitant]
     Active Substance: LEVOTHYROXINE SODIUM
  5. PEMBROLIZUMAB. [Suspect]
     Active Substance: PEMBROLIZUMAB
     Indication: SQUAMOUS CELL CARCINOMA OF LUNG
     Route: 041
     Dates: start: 20160810
  6. LENVATINIB [Suspect]
     Active Substance: LENVATINIB
     Route: 048
     Dates: start: 20160831, end: 20160904
  7. FERROUS SULFATE. [Concomitant]
     Active Substance: FERROUS SULFATE
  8. MULTAQ [Concomitant]
     Active Substance: DRONEDARONE
  9. ATENOLOL. [Concomitant]
     Active Substance: ATENOLOL
  10. CRESTOR [Concomitant]
     Active Substance: ROSUVASTATIN CALCIUM

REACTIONS (6)
  - Cardiac failure congestive [Recovered/Resolved]
  - Pneumonitis [Recovered/Resolved]
  - Hypertension [Recovered/Resolved]
  - Chronic obstructive pulmonary disease [Recovered/Resolved]
  - Respiratory failure [Recovered/Resolved]
  - Pulmonary oedema [Recovered/Resolved]

NARRATIVE: CASE EVENT DATE: 20160823
